FAERS Safety Report 8215438-4 (Version None)
Quarter: 2012Q1

REPORT INFORMATION
  Report Type: 
  Country: None (occurrence: None)
  Receive Date: 20120316
  Receipt Date: 20120309
  Transmission Date: 20120608
  Serious: Yes (Hospitalization)
  Sender: FDA-Public Use
  Company Number: US-US-EMD SERONO, INC.-7084510

PATIENT
  Sex: Male
  Weight: 107 kg

DRUGS (4)
  1. FLU AND PNEUMONIA SHOTS [Concomitant]
     Indication: IMMUNISATION
     Dates: start: 20120201
  2. AMPYRA [Concomitant]
     Indication: PRODUCT USED FOR UNKNOWN INDICATION
  3. IBUPROFEN [Concomitant]
     Indication: PREMEDICATION
  4. REBIF [Suspect]
     Indication: MULTIPLE SCLEROSIS
     Route: 058
     Dates: start: 20110726

REACTIONS (6)
  - MULTIPLE SCLEROSIS RELAPSE [None]
  - DYSARTHRIA [None]
  - MUSCLE SPASTICITY [None]
  - CELLULITIS [None]
  - MOBILITY DECREASED [None]
  - FALL [None]
